FAERS Safety Report 4724620-X (Version None)
Quarter: 2005Q3

REPORT INFORMATION
  Report Type: 
  Country: None (occurrence: None)
  Receive Date: 20050722
  Receipt Date: 20050710
  Transmission Date: 20060218
  Serious: Yes (Hospitalization)
  Sender: FDA-Public Use
  Company Number: 2005BI006589

PATIENT
  Age: 34 Year
  Sex: Female

DRUGS (7)
  1. AVONEX [Suspect]
     Indication: MULTIPLE SCLEROSIS
     Dosage: SEE IMAGE
     Route: 030
     Dates: start: 20050304
  2. AVONEX [Suspect]
     Indication: MULTIPLE SCLEROSIS
     Dosage: SEE IMAGE
     Route: 030
     Dates: start: 20050304
  3. IBUPROFEN [Concomitant]
  4. BACLOFEN [Concomitant]
  5. CALCICHEW (CALCIUM CARBONATE) [Concomitant]
  6. FOSAMAX [Concomitant]
  7. LANSOPRAZOLE [Concomitant]

REACTIONS (5)
  - EYE PRURITUS [None]
  - INJECTION SITE PAIN [None]
  - PROGRESSIVE MULTIPLE SCLEROSIS [None]
  - URTICARIA [None]
  - VISUAL DISTURBANCE [None]
